FAERS Safety Report 8205337-6 (Version None)
Quarter: 2012Q1

REPORT INFORMATION
  Report Type: 
  Country: None (occurrence: None)
  Receive Date: 20120313
  Receipt Date: 20120301
  Transmission Date: 20120608
  Serious: Yes (Other)
  Sender: FDA-Public Use
  Company Number: US-JNJFOC-20120301379

PATIENT
  Sex: Female
  Weight: 54.43 kg

DRUGS (6)
  1. FLEXERIL [Concomitant]
     Indication: MUSCLE RELAXANT THERAPY
     Dosage: 2-3 TIMES A DAY
     Route: 048
     Dates: start: 20100101
  2. XANAX [Concomitant]
     Indication: ANXIETY
     Route: 048
     Dates: start: 20100101
  3. INDOMETHACIN [Concomitant]
     Indication: INFLAMMATION
     Route: 048
     Dates: start: 20100101
  4. REMICADE [Suspect]
     Indication: ANKYLOSING SPONDYLITIS
     Dosage: 300 ML/SOLUTION EVERY 6-8 WEEKS
     Route: 042
     Dates: start: 20120214
  5. HYDROCODONE BITARTRATE [Concomitant]
     Indication: PAIN
     Dosage: 7.5/650 MG/TABLET
     Route: 048
     Dates: start: 20100101
  6. REMICADE [Suspect]
     Dosage: 200ML/SOLUTION EVERY 6-8 WEEKS
     Route: 042
     Dates: start: 20110101, end: 20120214

REACTIONS (6)
  - CEREBROVASCULAR ACCIDENT [None]
  - RED BLOOD CELL SEDIMENTATION RATE INCREASED [None]
  - VOMITING [None]
  - INFLAMMATION [None]
  - BACK PAIN [None]
  - NAUSEA [None]
